FAERS Safety Report 4556422-1 (Version None)
Quarter: 2005Q1

REPORT INFORMATION
  Report Type: 
  Country: None (occurrence: None)
  Receive Date: 20050114
  Receipt Date: 20041230
  Transmission Date: 20050727
  Serious: Yes (Hospitalization)
  Sender: FDA-Public Use
  Company Number: 2004SE07287

PATIENT
  Age: 30 Year
  Sex: Male

DRUGS (4)
  1. SEROQUEL [Suspect]
     Indication: SCHIZOPHRENIA
     Dosage: 1 G DAILY PO
     Route: 048
     Dates: start: 20040325, end: 20040426
  2. VALPROIC ACID [Suspect]
     Indication: EPILEPSY
     Dosage: 1 G DAILY PO
     Route: 048
     Dates: start: 20040320, end: 20040420
  3. RISPERDAL [Suspect]
     Indication: SCHIZOPHRENIA
     Dosage: 3 MG DAILY PO
     Route: 048
     Dates: start: 20040419, end: 20040421
  4. GARDENALE [Concomitant]

REACTIONS (1)
  - PANCYTOPENIA [None]
